FAERS Safety Report 7297724-8 (Version None)
Quarter: 2011Q1

REPORT INFORMATION
  Report Type: 
  Country: None (occurrence: None)
  Receive Date: 20110214
  Receipt Date: 20110214
  Transmission Date: 20110831
  Serious: Yes (Other)
  Sender: FDA-Public Use
  Company Number: None

PATIENT
  Age: 29 Year
  Sex: Female
  Weight: 43.0917 kg

DRUGS (2)
  1. HIZENTRA [Suspect]
     Dosage: 6 GM QWK SQ
     Route: 058
     Dates: start: 20110122, end: 20110210
  2. HIZENTRA [Suspect]
     Dosage: 6 GM QWK SQ
     Route: 058
     Dates: start: 20110115, end: 20110115

REACTIONS (8)
  - BONE PAIN [None]
  - FLUSHING [None]
  - PYREXIA [None]
  - CHILLS [None]
  - DYSPNOEA [None]
  - NAUSEA [None]
  - BACK PAIN [None]
  - TACHYCARDIA [None]
